FAERS Safety Report 11203676 (Version 3)
Quarter: 2015Q3

REPORT INFORMATION
  Report Type: Report from Study
  Country: US (occurrence: US)
  Receive Date: 20150619
  Receipt Date: 20150716
  Transmission Date: 20151125
  Serious: Yes (Hospitalization)
  Sender: FDA-Public Use
  Company Number: US-EXELIXIS-CABO-15005268

PATIENT
  Sex: Female

DRUGS (3)
  1. CABOZANTINIB [Suspect]
     Active Substance: CABOZANTINIB
     Indication: THYROID CANCER
     Dosage: 140 MG, QD
     Route: 048
     Dates: start: 20150225, end: 20150602
  2. CABOZANTINIB [Suspect]
     Active Substance: CABOZANTINIB
     Dosage: 100 MG, QD
     Route: 048
     Dates: start: 20150612, end: 20150707
  3. CABOZANTINIB [Suspect]
     Active Substance: CABOZANTINIB
     Dosage: 140 MG, QD
     Route: 048
     Dates: start: 20150609, end: 20150611

REACTIONS (9)
  - Anxiety [Unknown]
  - Decreased appetite [Unknown]
  - Skin sensitisation [Unknown]
  - Dry skin [Unknown]
  - Pyrexia [Unknown]
  - Sinus tachycardia [Unknown]
  - Nausea [Unknown]
  - Asthenia [Unknown]
  - Diarrhoea [Unknown]
